FAERS Safety Report 7240882-1 (Version None)
Quarter: 2011Q1

REPORT INFORMATION
  Report Type: 
  Country: None (occurrence: None)
  Receive Date: 20110120
  Receipt Date: 20110120
  Transmission Date: 20110831
  Serious: Yes (Hospitalization)
  Sender: FDA-Public Use
  Company Number: None

PATIENT
  Age: 60 Year
  Sex: Male
  Weight: 74 kg

DRUGS (7)
  1. QUETIAPINE [Suspect]
     Indication: AFFECTIVE DISORDER
     Dosage: 100 MG Q AM AND 400 MG HS
     Dates: start: 20060717
  2. QUETIAPINE [Suspect]
     Indication: DEMENTIA
     Dosage: 100 MG Q AM AND 400 MG HS
     Dates: start: 20060717
  3. LITHIUM CARBONATE [Suspect]
     Indication: AFFECTIVE DISORDER
     Dosage: 300 MG Q AM AND 450 MG HS
     Dates: start: 20070710
  4. LITHIUM CARBONATE [Suspect]
     Indication: DEMENTIA
     Dosage: 300 MG Q AM AND 450 MG HS
     Dates: start: 20070710
  5. ZOLPIDEM [Suspect]
     Indication: INSOMNIA
     Dosage: 10 MG HS
     Dates: start: 20101202, end: 20101214
  6. CLONAZEPAM [Suspect]
     Indication: AFFECTIVE DISORDER
     Dosage: 0.5 MG Q AM AND 2 MG HS
     Dates: start: 20101006
  7. CLONAZEPAM [Suspect]
     Indication: DEMENTIA
     Dosage: 0.5 MG Q AM AND 2 MG HS
     Dates: start: 20101006

REACTIONS (1)
  - HYPOTENSION [None]
